FAERS Safety Report 7475297-4 (Version None)
Quarter: 2011Q2

REPORT INFORMATION
  Report Type: 
  Country: None (occurrence: None)
  Receive Date: 20110509
  Receipt Date: 20110509
  Transmission Date: 20111010
  Serious: No
  Sender: FDA-Public Use
  Company Number: None

PATIENT
  Sex: Male
  Weight: 85.2762 kg

DRUGS (4)
  1. BUPROPION HCL [Suspect]
     Indication: ANXIETY DISORDER
     Dosage: 300 MG QD PO 75 MG QD PO
     Route: 048
     Dates: start: 20101222, end: 20110119
  2. BUPROPION HCL [Suspect]
     Indication: MAJOR DEPRESSION
     Dosage: 300 MG QD PO 75 MG QD PO
     Route: 048
     Dates: start: 20101222, end: 20110119
  3. BUPROPION HCL [Suspect]
     Indication: ANXIETY DISORDER
     Dosage: 300 MG QD PO 75 MG QD PO
     Route: 048
     Dates: start: 20081008, end: 20081201
  4. BUPROPION HCL [Suspect]
     Indication: MAJOR DEPRESSION
     Dosage: 300 MG QD PO 75 MG QD PO
     Route: 048
     Dates: start: 20081008, end: 20081201

REACTIONS (2)
  - DEPRESSION [None]
  - ANXIETY [None]
